FAERS Safety Report 7153162-X (Version None)
Quarter: 2010Q4

REPORT INFORMATION
  Report Type: 
  Country: None (occurrence: None)
  Receive Date: 20101130
  Receipt Date: 20101118
  Transmission Date: 20110411
  Serious: Yes (Hospitalization, Other)
  Sender: FDA-Public Use
  Company Number: 2010SP042284

PATIENT
  Age: 40 Year
  Sex: Female
  Weight: 92.0802 kg

DRUGS (4)
  1. NUVARING [Suspect]
     Indication: CONTRACEPTION
     Dates: start: 20050101, end: 20070819
  2. LOPRESSOR [Suspect]
  3. DECONGESTANT [Suspect]
     Indication: RHINITIS
  4. PROZAC [Concomitant]

REACTIONS (13)
  - ARTERIOSCLEROSIS CORONARY ARTERY [None]
  - ASTHMA [None]
  - C-REACTIVE PROTEIN INCREASED [None]
  - CONJUNCTIVITIS [None]
  - DEEP VEIN THROMBOSIS [None]
  - DYSPNOEA [None]
  - MUSCLE DISORDER [None]
  - OXYGEN SATURATION DECREASED [None]
  - PALPITATIONS [None]
  - PHLEBITIS [None]
  - SINUSITIS [None]
  - TACHYCARDIA [None]
  - UPPER RESPIRATORY TRACT INFECTION [None]
